FAERS Safety Report 11412714 (Version 1)
Quarter: 2015Q3

REPORT INFORMATION
  Report Type: Spontaneous
  Country: US (occurrence: US)
  Receive Date: 20150821
  Receipt Date: 20150821
  Transmission Date: 20151125
  Serious: No
  Sender: FDA-Public Use
  Company Number: US-ELI_LILLY_AND_COMPANY-US_030796235

PATIENT
  Age: 72 Year
  Sex: Female
  Weight: 101.82 kg

DRUGS (7)
  1. HUMULIN NOS [Suspect]
     Active Substance: INSULIN HUMAN
     Indication: TYPE 2 DIABETES MELLITUS
     Dosage: 10 U, 2/D
     Route: 058
     Dates: start: 1999
  2. ASPIRIN                            /00346701/ [Concomitant]
     Dosage: UNK, UNKNOWN
  3. HYTONE [Concomitant]
     Active Substance: HYDROCORTISONE
     Dosage: UNK, UNKNOWN
  4. COUMADIN [Concomitant]
     Active Substance: WARFARIN SODIUM
     Dosage: UNK, UNKNOWN
  5. HUMULIN NOS [Suspect]
     Active Substance: INSULIN HUMAN
     Dosage: 10 U, 2/D
     Route: 058
     Dates: start: 1999
  6. NOVOLIN [Concomitant]
     Active Substance: INSULIN HUMAN
     Indication: DIABETES MELLITUS
     Dosage: UNK, UNKNOWN
     Route: 058
     Dates: start: 200306, end: 20030711
  7. HUMULIN NOS [Suspect]
     Active Substance: INSULIN HUMAN
     Dosage: 10 U, 2/D
     Route: 058
     Dates: start: 1999

REACTIONS (19)
  - Pruritus [Unknown]
  - Osteoarthritis [Unknown]
  - Weight decreased [Unknown]
  - Arthropod bite [Unknown]
  - Agoraphobia [Unknown]
  - Hot flush [Not Recovered/Not Resolved]
  - Blood glucose increased [Recovered/Resolved]
  - Stress [Unknown]
  - Fatigue [Unknown]
  - Protein urine present [Unknown]
  - Dyspnoea [Unknown]
  - Urticaria [Unknown]
  - Insomnia [Unknown]
  - Hypoacusis [Not Recovered/Not Resolved]
  - Memory impairment [Unknown]
  - Rash pruritic [Recovered/Resolved with Sequelae]
  - Scar [Unknown]
  - Limb injury [Unknown]
  - Malaise [Unknown]

NARRATIVE: CASE EVENT DATE: 2002
